FAERS Safety Report 8173638-6 (Version None)
Quarter: 2012Q1

REPORT INFORMATION
  Report Type: 
  Country: None (occurrence: None)
  Receive Date: 20120229
  Receipt Date: 20120220
  Transmission Date: 20120608
  Serious: Yes (Hospitalization)
  Sender: FDA-Public Use
  Company Number: US-BAYER-2011-047284

PATIENT
  Age: 17 Year
  Sex: Female
  Weight: 54.422 kg

DRUGS (1)
  1. YAZ [Suspect]
     Indication: MENSTRUAL CYCLE MANAGEMENT
     Dosage: UNK
     Dates: start: 20070501, end: 20081101

REACTIONS (8)
  - EMOTIONAL DISTRESS [None]
  - PSYCHOLOGICAL TRAUMA [None]
  - GALLBLADDER DISORDER [None]
  - ABDOMINAL PAIN UPPER [None]
  - FEAR [None]
  - CHOLECYSTITIS [None]
  - INJURY [None]
  - PAIN [None]
